FAERS Safety Report 6921889-8 (Version None)
Quarter: 2010Q3

REPORT INFORMATION
  Report Type: 
  Country: None (occurrence: None)
  Receive Date: 20100812
  Receipt Date: 20100805
  Transmission Date: 20110219
  Serious: Yes (Death, Other)
  Sender: FDA-Public Use
  Company Number: TW-CEPHALON-2010003989

PATIENT
  Sex: Male

DRUGS (9)
  1. TREANDA [Suspect]
     Indication: B-CELL LYMPHOMA
     Route: 042
     Dates: start: 20100408, end: 20100409
  2. TREANDA [Suspect]
     Route: 042
     Dates: start: 20100429, end: 20100430
  3. TREANDA [Suspect]
     Route: 042
     Dates: start: 20100527, end: 20100528
  4. TREANDA [Suspect]
     Route: 042
     Dates: start: 20100624, end: 20100625
  5. NYSTATIN [Concomitant]
     Dates: start: 20100708
  6. CATAFLAM [Concomitant]
     Dates: start: 20100708
  7. MEGEST [Concomitant]
     Dates: start: 20100623
  8. SUCRALFATE [Concomitant]
     Dates: start: 20100608
  9. CHLORHEXIDINE AND CETRIMIDE [Concomitant]
     Dates: start: 20100708

REACTIONS (4)
  - ANAEMIA [None]
  - DEPRESSED LEVEL OF CONSCIOUSNESS [None]
  - FEBRILE NEUTROPENIA [None]
  - SEPTIC SHOCK [None]
